FAERS Safety Report 16856047 (Version 21)
Quarter: 2024Q4

REPORT INFORMATION
  Report Type: Spontaneous
  Country: US (occurrence: US)
  Receive Date: 20190926
  Receipt Date: 20241014
  Transmission Date: 20250115
  Serious: No
  Sender: PFIZER
  Company Number: US-PFIZER INC-2017479760

PATIENT
  Age: 83 Year
  Sex: Female
  Weight: 57 kg

DRUGS (19)
  1. PREMARIN [Suspect]
     Active Substance: ESTROGENS, CONJUGATED
     Indication: Menopausal symptoms
     Dosage: UNK
     Dates: start: 1958
  2. PREMARIN [Suspect]
     Active Substance: ESTROGENS, CONJUGATED
     Dosage: 0.5 TABLET, DAILY (0.5 TABLET)
     Route: 048
     Dates: start: 20171102
  3. PREMARIN [Suspect]
     Active Substance: ESTROGENS, CONJUGATED
     Dosage: 0.5 DF, 1X/DAY (HALF TABLET ONCE A DAY EVERY MORNING)
     Route: 048
  4. PREMARIN [Suspect]
     Active Substance: ESTROGENS, CONJUGATED
     Dosage: 0.5 DF, DAILY
  5. PREMARIN [Suspect]
     Active Substance: ESTROGENS, CONJUGATED
     Dosage: TAKE 1/2 (ONE-HALF) TABLET BY MOUTH ONCE DAILY
     Route: 048
  6. NORVASC [Concomitant]
     Active Substance: AMLODIPINE BESYLATE
     Dosage: 2.5 MG, DAILY
     Route: 048
     Dates: start: 20170808
  7. MINERALS\VITAMINS [Concomitant]
     Active Substance: MINERALS\VITAMINS
     Dosage: 1 DF, DAILY
     Route: 048
     Dates: start: 20100220
  8. VASOTEC [Concomitant]
     Active Substance: ENALAPRIL MALEATE
     Dosage: 20 MG, 2X/DAY
     Route: 048
     Dates: start: 20170808
  9. HYDRODIURIL [Concomitant]
     Active Substance: HYDROCHLOROTHIAZIDE
     Dosage: 25 MG, DAILY
     Route: 048
     Dates: start: 20170808
  10. LOPRESSOR [Concomitant]
     Active Substance: METOPROLOL TARTRATE
     Dosage: UNK, 2X/DAY (1 1/2 TABS)
     Route: 048
     Dates: start: 20170808
  11. PRILOSEC [Concomitant]
     Active Substance: OMEPRAZOLE MAGNESIUM
     Dosage: 20 MG, DAILY
     Route: 048
     Dates: start: 20170808
  12. KLOR-CON M10 [Concomitant]
     Active Substance: POTASSIUM CHLORIDE
     Dosage: 10 MEQ, DAILY
     Route: 048
     Dates: start: 20170808
  13. ZOCOR [Concomitant]
     Active Substance: SIMVASTATIN
     Dosage: 0.25 DF, DAILY
     Dates: start: 20170808
  14. METOPROLOL [Concomitant]
     Active Substance: METOPROLOL
     Indication: Blood pressure abnormal
     Dosage: 75 MG (ONE AND ONE HALF TABLET), 2X/DAY
     Route: 048
  15. ENALAPRIL [Concomitant]
     Active Substance: ENALAPRIL
     Indication: Blood pressure abnormal
     Dosage: 20 MG, 2X/DAY
     Route: 048
  16. SIMVASTATIN [Concomitant]
     Active Substance: SIMVASTATIN
  17. POTASSIUM [Concomitant]
     Active Substance: POTASSIUM
  18. AMLODIPINE [Concomitant]
     Active Substance: AMLODIPINE BESYLATE
  19. PYRIDOXINE HYDROCHLORIDE [Concomitant]
     Active Substance: PYRIDOXINE HYDROCHLORIDE
     Dosage: 1 DF, 1X/DAY

REACTIONS (2)
  - Malaise [Unknown]
  - Nasopharyngitis [Recovering/Resolving]

NARRATIVE: CASE EVENT DATE: 20201030
